FAERS Safety Report 6506339-8 (Version None)
Quarter: 2009Q4

REPORT INFORMATION
  Report Type: 
  Country: None (occurrence: None)
  Receive Date: 20091218
  Receipt Date: 20091207
  Transmission Date: 20100525
  Serious: Yes (Hospitalization)
  Sender: FDA-Public Use
  Company Number: CA-ELI_LILLY_AND_COMPANY-CA200912001892

PATIENT
  Age: 76 Year
  Sex: Female

DRUGS (12)
  1. FORTEO [Suspect]
     Indication: OSTEOPOROSIS
     Dosage: 20 UG, DAILY (1/D)
     Dates: start: 20090219, end: 20091005
  2. FORTEO [Suspect]
     Dosage: 20 UG, DAILY (1/D)
     Dates: start: 20091122
  3. LASIX [Concomitant]
  4. OXAZEPAM [Concomitant]
  5. ASAPHEN [Concomitant]
  6. PLAVIX [Concomitant]
  7. CALCIUM [Concomitant]
  8. VITAMIN D [Concomitant]
  9. LYRICA [Concomitant]
  10. NORVASC [Concomitant]
  11. LOPRESSOR [Concomitant]
  12. VANCOMYCIN [Concomitant]

REACTIONS (4)
  - MYOCARDIAL INFARCTION [None]
  - OEDEMA PERIPHERAL [None]
  - POOR PERIPHERAL CIRCULATION [None]
  - WOUND INFECTION [None]
